FAERS Safety Report 10184273 (Version 1)
Quarter: 2014Q2

REPORT INFORMATION
  Report Type: Spontaneous
  Country: DE (occurrence: DE)
  Receive Date: 20140520
  Receipt Date: 20140520
  Transmission Date: 20141212
  Serious: Yes (Other)
  Sender: FDA-Public Use
  Company Number: DE-B.I. PHARMACEUTICALS,INC./RIDGEFIELD-2014-BI-22272DE

PATIENT
  Sex: Male

DRUGS (2)
  1. TELMISARTAN [Suspect]
     Indication: PRODUCT USED FOR UNKNOWN INDICATION
     Dosage: 160 MG
     Route: 065
     Dates: start: 2008
  2. TELMISARTAN [Suspect]
     Dosage: 80 MG
     Route: 065

REACTIONS (2)
  - Renal injury [Unknown]
  - Overdose [Unknown]
